FAERS Safety Report 14802009 (Version 1)
Quarter: 2018Q2

REPORT INFORMATION
  Report Type: Spontaneous
  Country: US (occurrence: US)
  Receive Date: 20180424
  Receipt Date: 20180424
  Transmission Date: 20180711
  Serious: Yes (Other)
  Sender: FDA-Public Use
  Company Number: US-GLAXOSMITHKLINE-US2018GSK071095

PATIENT
  Age: 12 Year
  Sex: Female

DRUGS (3)
  1. CO-AMOXICLAV [Suspect]
     Active Substance: AMOXICILLIN\CLAVULANIC ACID
     Indication: PYREXIA
  2. LAMOTRIGINE. [Suspect]
     Active Substance: LAMOTRIGINE
     Indication: JUVENILE MYOCLONIC EPILEPSY
  3. CO-AMOXICLAV [Suspect]
     Active Substance: AMOXICILLIN\CLAVULANIC ACID
     Indication: LYMPHADENOPATHY

REACTIONS (15)
  - Adrenal insufficiency [Unknown]
  - Pyrexia [Unknown]
  - Eosinophilia [Unknown]
  - Temperature intolerance [Unknown]
  - Bradycardia [Unknown]
  - Fatigue [Unknown]
  - Decreased appetite [Unknown]
  - Rash pruritic [Recovering/Resolving]
  - Transaminases increased [Unknown]
  - Drug reaction with eosinophilia and systemic symptoms [Recovering/Resolving]
  - Rash morbilliform [Unknown]
  - Malaise [Unknown]
  - Lymphadenopathy [Unknown]
  - Euthyroid sick syndrome [Unknown]
  - Bradykinesia [Unknown]
